FAERS Safety Report 15852813 (Version 2)
Quarter: 2019Q1

REPORT INFORMATION
  Report Type: Report from Study
  Country: GB (occurrence: GB)
  Receive Date: 20190122
  Receipt Date: 20190210
  Transmission Date: 20190417
  Serious: Yes (Other)
  Sender: FDA-Public Use
  Company Number: PHHY2018GB050509

PATIENT
  Sex: Male

DRUGS (1)
  1. ERELZI [Suspect]
     Active Substance: ETANERCEPT-SZZS
     Indication: ANKYLOSING SPONDYLITIS
     Dosage: 50 MG, QW, PRE FILLED PAIN
     Route: 058
     Dates: start: 20180309

REACTIONS (3)
  - Clostridium difficile infection [Unknown]
  - Pain [Unknown]
  - Abdominal discomfort [Recovered/Resolved]
